FAERS Safety Report 20368769 (Version 1)
Quarter: 2022Q1

REPORT INFORMATION
  Report Type: Spontaneous
  Country: DE (occurrence: DE)
  Receive Date: 20220124
  Receipt Date: 20220124
  Transmission Date: 20220424
  Serious: Yes (Hospitalization)
  Sender: FDA-Public Use
  Company Number: None

PATIENT
  Age: 62 Year
  Sex: Female
  Weight: 90 kg

DRUGS (5)
  1. CISPLATIN [Suspect]
     Active Substance: CISPLATIN
     Indication: Product used for unknown indication
     Dosage: 137.9 MG, ON THE THIRD OF JUNE SOLUTION FOR INJECTION/INFUSION
     Route: 042
  2. GEMCITABINE [Suspect]
     Active Substance: GEMCITABINE
     Indication: Product used for unknown indication
     Dosage: 2364 MG, ON THE SECOND OF JUNE SOLUTION FOR INJECTION/INFUSION
     Route: 042
  3. ACETYLCYSTEINE [Concomitant]
     Active Substance: ACETYLCYSTEINE
     Dosage: 600 MG, 1-0-0-0, TABLETS
     Route: 048
  4. ENOXAPARIN SODIUM [Concomitant]
     Active Substance: ENOXAPARIN SODIUM
     Dosage: 0.8 ML, 1-0-1-0, PRE-FILLED SYRINGES, 8000I.U. (80MG)/0.8ML SOLUTION FOR INJECTION
     Route: 058
  5. ONDANSETRON [Concomitant]
     Active Substance: ONDANSETRON
     Dosage: 4 MG, AS REQUIRED, TABLETS
     Route: 048

REACTIONS (5)
  - Malaise [Recovering/Resolving]
  - Flank pain [Recovering/Resolving]
  - Hypotension [Recovering/Resolving]
  - Pyrexia [Recovering/Resolving]
  - Urosepsis [Recovering/Resolving]
